FAERS Safety Report 4778361-3 (Version None)
Quarter: 2005Q3

REPORT INFORMATION
  Report Type: 
  Country: None (occurrence: None)
  Receive Date: 20050926
  Receipt Date: 20050916
  Transmission Date: 20060218
  Serious: Yes (Hospitalization)
  Sender: FDA-Public Use
  Company Number: US-JNJFOC-20050904846

PATIENT
  Sex: Female
  Weight: 90.72 kg

DRUGS (7)
  1. DURAGESIC-100 [Suspect]
     Route: 062
  2. FUROSEMIDE [Suspect]
     Route: 048
  3. METOLAZONE [Suspect]
     Route: 048
  4. CYMBALTA [Concomitant]
     Indication: PAIN
     Route: 048
  5. NORVASC [Concomitant]
     Route: 048
  6. CLONIDINE [Concomitant]
     Route: 048
  7. POTASSIUM [Concomitant]
     Dosage: PATIENT REPORTED ^I DON'T ALWAYS TAKE IT^.
     Route: 048

REACTIONS (2)
  - BLOOD POTASSIUM DECREASED [None]
  - DERMATITIS CONTACT [None]
